FAERS Safety Report 4682554-3 (Version None)
Quarter: 2005Q2

REPORT INFORMATION
  Report Type: 
  Country: None (occurrence: None)
  Receive Date: 20050606
  Receipt Date: 20050310
  Transmission Date: 20051028
  Serious: Yes (Disabling, Other)
  Sender: FDA-Public Use
  Company Number: US-MERCK-0503USA02085

PATIENT
  Age: 35 Year
  Sex: Female
  Weight: 82 kg

DRUGS (2)
  1. VIOXX [Suspect]
     Indication: PAIN
     Route: 048
     Dates: start: 20030601, end: 20040101
  2. VIOXX [Suspect]
     Route: 048
     Dates: start: 20030601, end: 20040101

REACTIONS (11)
  - BUNDLE BRANCH BLOCK RIGHT [None]
  - CHEST PAIN [None]
  - DILATATION VENTRICULAR [None]
  - EMOTIONAL DISTRESS [None]
  - HYPOAESTHESIA [None]
  - JOINT INJURY [None]
  - LIGAMENT INJURY [None]
  - MITRAL VALVE INCOMPETENCE [None]
  - MYOCARDIAL INFARCTION [None]
  - TRICUSPID VALVE INCOMPETENCE [None]
  - WEIGHT INCREASED [None]
